FAERS Safety Report 17790408 (Version 1)
Quarter: 2020Q2

REPORT INFORMATION
  Report Type: Spontaneous
  Country: NL (occurrence: NL)
  Receive Date: 20200514
  Receipt Date: 20200514
  Transmission Date: 20200714
  Serious: Yes (Other)
  Sender: FDA-Public Use
  Company Number: NVSC2020NL128940

PATIENT
  Sex: Female

DRUGS (3)
  1. NIFEDIPINE. [Interacting]
     Active Substance: NIFEDIPINE
     Indication: PRODUCT USED FOR UNKNOWN INDICATION
     Dosage: UNK
     Route: 065
  2. LISINOPRIL. [Interacting]
     Active Substance: LISINOPRIL
     Indication: PRODUCT USED FOR UNKNOWN INDICATION
     Dosage: UNK
     Route: 065
     Dates: end: 20110211
  3. HYDROCHLOROTHIAZIDE. [Suspect]
     Active Substance: HYDROCHLOROTHIAZIDE
     Indication: HYPERTENSION
     Dosage: UNK
     Route: 065

REACTIONS (26)
  - Face oedema [Unknown]
  - Facial pain [Unknown]
  - Vision blurred [Unknown]
  - Dyspnoea [Unknown]
  - Butterfly rash [Unknown]
  - Syncope [Unknown]
  - Hypersensitivity [Unknown]
  - Lethargy [Unknown]
  - Skin burning sensation [Unknown]
  - Heart rate irregular [Unknown]
  - Headache [Unknown]
  - Drug interaction [Unknown]
  - Eye pain [Unknown]
  - Musculoskeletal discomfort [Unknown]
  - Pain of skin [Unknown]
  - Butterfly rash [Unknown]
  - Skin exfoliation [Unknown]
  - Asthenia [Unknown]
  - Adverse drug reaction [Unknown]
  - Neck pain [Unknown]
  - Skin tightness [Unknown]
  - Eyelid pain [Unknown]
  - Dizziness [Unknown]
  - Restless legs syndrome [Unknown]
  - Erythema of eyelid [Unknown]
  - Swelling of eyelid [Unknown]

NARRATIVE: CASE EVENT DATE: 20080623
